FAERS Safety Report 4527796-2 (Version None)
Quarter: 2004Q4

REPORT INFORMATION
  Report Type: 
  Country: None (occurrence: None)
  Receive Date: 20041215
  Receipt Date: 20041105
  Transmission Date: 20050328
  Serious: Yes (Other)
  Sender: FDA-Public Use
  Company Number: JP-GLAXOSMITHKLINE-B0357455A

PATIENT
  Age: 79 Year
  Sex: Female

DRUGS (2)
  1. ZANTAC [Suspect]
     Dosage: 75MG PER DAY
     Route: 048
     Dates: start: 20040902, end: 20040905
  2. CALBLOCK [Concomitant]
     Dosage: 16MG PER DAY
     Route: 048
     Dates: start: 20040902, end: 20040905

REACTIONS (7)
  - ANAPHYLACTOID REACTION [None]
  - COLD SWEAT [None]
  - DYSSTASIA [None]
  - ERYTHEMA [None]
  - PRURITUS [None]
  - SPEECH DISORDER [None]
  - THIRST [None]
